FAERS Safety Report 23643219 (Version 1)
Quarter: 2024Q1

REPORT INFORMATION
  Report Type: Spontaneous
  Country: US (occurrence: US)
  Receive Date: 20240318
  Receipt Date: 20240318
  Transmission Date: 20240409
  Serious: No
  Sender: FDA-Public Use
  Company Number: US-GSK-US2024031051

PATIENT
  Age: 68 Year
  Sex: Male
  Weight: 77.11 kg

DRUGS (6)
  1. NUCALA [Suspect]
     Active Substance: MEPOLIZUMAB
     Indication: Eosinophilia
     Dosage: 100 MG
     Dates: start: 2023
  2. DUONEB [Concomitant]
     Active Substance: ALBUTEROL SULFATE\IPRATROPIUM BROMIDE
     Indication: Bronchiectasis
     Dosage: UNK, 0.5MG/3MG
     Dates: start: 2022
  3. PREDNISONE [Concomitant]
     Active Substance: PREDNISONE
     Indication: Pulmonary congestion
     Dosage: 10 MG
     Dates: start: 2022
  4. BUDESONIDE [Concomitant]
     Active Substance: BUDESONIDE
     Indication: Bronchiectasis
     Dosage: 0.5 MG
     Dates: start: 2023
  5. ALBUTEROL [Concomitant]
     Active Substance: ALBUTEROL
     Indication: Bronchiectasis
     Dosage: 90 UG, USE AS NEEDED
     Dates: start: 2022
  6. MUCOMYST [Concomitant]
     Active Substance: ACETYLCYSTEINE
     Indication: Pulmonary congestion
     Dosage: 200 MG
     Dates: start: 2022

REACTIONS (1)
  - Product dose omission issue [Unknown]

NARRATIVE: CASE EVENT DATE: 20240307
